FAERS Safety Report 23108162 (Version 3)
Quarter: 2023Q4

REPORT INFORMATION
  Report Type: Spontaneous
  Country: GB (occurrence: GB)
  Receive Date: 20231026
  Receipt Date: 20231221
  Transmission Date: 20240110
  Serious: Yes (Hospitalization, Other)
  Sender: FDA-Public Use
  Company Number: GB-PFIZER INC-PV202300152092

PATIENT
  Age: 67 Year
  Sex: Male

DRUGS (1)
  1. ENBREL [Suspect]
     Active Substance: ETANERCEPT
     Indication: Rheumatoid arthritis
     Dosage: 50 MG, WEEKLY
     Route: 058

REACTIONS (7)
  - Myelitis [Unknown]
  - Joint stiffness [Unknown]
  - Skin discolouration [Unknown]
  - Malaise [Unknown]
  - Joint noise [Unknown]
  - Localised infection [Unknown]
  - Streptococcal infection [Unknown]
